FAERS Safety Report 10924063 (Version 2)
Quarter: 2015Q2

REPORT INFORMATION
  Report Type: Spontaneous
  Country: US (occurrence: US)
  Receive Date: 20150318
  Receipt Date: 20150526
  Transmission Date: 20150821
  Serious: No
  Sender: FDA-Public Use
  Company Number: US-JNJFOC-20140909452

PATIENT
  Sex: Female
  Weight: 46.72 kg

DRUGS (3)
  1. SPORANOX [Suspect]
     Active Substance: ITRACONAZOLE\SODIUM CHLORIDE
     Indication: UPPER RESPIRATORY FUNGAL INFECTION
     Route: 048
     Dates: start: 201409
  2. AMPHOTERICIN [Concomitant]
     Active Substance: AMPHOTERICIN B
     Route: 055
  3. SPORANOX [Suspect]
     Active Substance: ITRACONAZOLE\SODIUM CHLORIDE
     Indication: UPPER RESPIRATORY FUNGAL INFECTION
     Route: 048
     Dates: start: 201406, end: 201409

REACTIONS (4)
  - Paraesthesia [Unknown]
  - Myalgia [Not Recovered/Not Resolved]
  - Gait disturbance [Unknown]
  - Drug dose omission [Recovered/Resolved]

NARRATIVE: CASE EVENT DATE: 201406
